FAERS Safety Report 4785667-0 (Version None)
Quarter: 2005Q3

REPORT INFORMATION
  Report Type: 
  Country: None (occurrence: None)
  Receive Date: 20050930
  Receipt Date: 20050930
  Transmission Date: 20060218
  Serious: Yes (Life-Threatening, Hospitalization)
  Sender: FDA-Public Use
  Company Number: None

PATIENT
  Age: 28 Year
  Sex: Female
  Weight: 56.6996 kg

DRUGS (2)
  1. ORTHO TRI-CYCLEN [Suspect]
     Indication: ACNE
     Dosage: DAILY PO
     Route: 048
     Dates: start: 19960101, end: 20050724
  2. ORTHO TRI-CYCLEN [Suspect]
     Indication: DYSMENORRHOEA
     Dosage: DAILY PO
     Route: 048
     Dates: start: 19960101, end: 20050724

REACTIONS (4)
  - HEADACHE [None]
  - LOSS OF CONSCIOUSNESS [None]
  - PAIN [None]
  - TRANSVERSE SINUS THROMBOSIS [None]
